FAERS Safety Report 4352896-X (Version None)
Quarter: 2004Q2

REPORT INFORMATION
  Report Type: 
  Country: None (occurrence: None)
  Receive Date: 20040430
  Receipt Date: 20040227
  Transmission Date: 20050107
  Serious: No
  Sender: FDA-Public Use
  Company Number: 204988

PATIENT
  Age: 16 Year
  Sex: Female
  Weight: 82.5 kg

DRUGS (4)
  1. XOLAIR [Suspect]
     Indication: ASTHMA
     Dosage: 225 MG, Q2W, SUBCUTANEOUS
     Route: 058
     Dates: start: 20030814
  2. ADVAIR DISKUS [Concomitant]
  3. FLONASE [Concomitant]
  4. ALLEGRA [Concomitant]

REACTIONS (2)
  - ERYTHEMA [None]
  - URTICARIA [None]
